FAERS Safety Report 17761370 (Version 3)
Quarter: 2021Q3

REPORT INFORMATION
  Report Type: Spontaneous
  Country: US (occurrence: US)
  Receive Date: 20200508
  Receipt Date: 20210701
  Transmission Date: 20211014
  Serious: Yes (Other)
  Sender: FDA-Public Use
  Company Number: US-PERRIGO-20US006540

PATIENT
  Sex: Female

DRUGS (7)
  1. PROTONIX [Suspect]
     Active Substance: PANTOPRAZOLE SODIUM
     Indication: DYSPEPSIA
     Route: 048
  2. NEXIUM [Suspect]
     Active Substance: ESOMEPRAZOLE MAGNESIUM
     Indication: DYSPEPSIA
     Dosage: 40 MG
     Route: 048
     Dates: start: 20140830, end: 20161109
  3. NEXIUM 24HR [Suspect]
     Active Substance: ESOMEPRAZOLE MAGNESIUM
     Indication: DYSPEPSIA
     Dosage: UNK
     Route: 048
  4. DEXILANT [Suspect]
     Active Substance: DEXLANSOPRAZOLE
     Indication: DYSPEPSIA
     Dosage: UNK
     Route: 065
     Dates: start: 2009
  5. PRILOSEC [Suspect]
     Active Substance: OMEPRAZOLE MAGNESIUM
     Indication: DYSPEPSIA
     Dosage: UNK
     Route: 065
  6. PREVACID 24 HR [Suspect]
     Active Substance: LANSOPRAZOLE
     Indication: DYSPEPSIA
     Dosage: UNK
     Route: 048
  7. PREVACID [Suspect]
     Active Substance: LANSOPRAZOLE
     Indication: PRODUCT USED FOR UNKNOWN INDICATION
     Dosage: UNK
     Route: 065

REACTIONS (9)
  - Hydronephrosis [Unknown]
  - Renal atrophy [Unknown]
  - Nephrolithiasis [Not Recovered/Not Resolved]
  - Stress urinary incontinence [Unknown]
  - Chronic kidney disease [Unknown]
  - Acute kidney injury [Unknown]
  - Nephrectomy [Unknown]
  - Nephrolithiasis [Not Recovered/Not Resolved]
  - Renal disorder [Not Recovered/Not Resolved]

NARRATIVE: CASE EVENT DATE: 2013
